FAERS Safety Report 19986527 (Version 1)
Quarter: 2021Q4

REPORT INFORMATION
  Report Type: Spontaneous
  Country: US (occurrence: US)
  Receive Date: 20211022
  Receipt Date: 20211022
  Transmission Date: 20220303
  Serious: Yes (Hospitalization)
  Sender: FDA-Public Use
  Company Number: US-SANOFI-00814541

PATIENT
  Sex: Female

DRUGS (1)
  1. ICY HOT [Suspect]
     Active Substance: MENTHOL\METHYL SALICYLATE
     Dosage: UNK
     Dates: start: 202110, end: 202110

REACTIONS (3)
  - Accident [Unknown]
  - Skin burning sensation [Unknown]
  - Application site pustules [Unknown]

NARRATIVE: CASE EVENT DATE: 20211001
